FAERS Safety Report 11290625 (Version 1)
Quarter: 2015Q3

REPORT INFORMATION
  Report Type: Spontaneous
  Country: US (occurrence: None)
  Receive Date: 20150720
  Receipt Date: 20150720
  Transmission Date: 20151125
  Serious: Yes (Hospitalization)
  Sender: FDA-Public Use
  Company Number: None

PATIENT
  Age: 87 Year
  Sex: Male
  Weight: 99.79 kg

DRUGS (26)
  1. LORATADINE. [Concomitant]
     Active Substance: LORATADINE
  2. MIRALAX [Concomitant]
     Active Substance: POLYETHYLENE GLYCOL 3350
  3. CLINDAMYCIN [Suspect]
     Active Substance: CLINDAMYCIN\CLINDAMYCIN PHOSPHATE
     Indication: ABSCESS
     Route: 048
     Dates: start: 20150704, end: 20150707
  4. ATORVASTATIN [Concomitant]
     Active Substance: ATORVASTATIN
  5. HYDROCORTISONE. [Concomitant]
     Active Substance: HYDROCORTISONE
  6. MURO 2% EYE DROPS [Concomitant]
  7. SARNA TOPICAL LOTION [Concomitant]
  8. SPIRIVA [Concomitant]
     Active Substance: TIOTROPIUM BROMIDE MONOHYDRATE
  9. ALBUTEROL INHALER [Concomitant]
     Active Substance: ALBUTEROL
  10. COZAAR [Concomitant]
     Active Substance: LOSARTAN POTASSIUM
  11. ZADITOR EYE DROPS [Concomitant]
  12. CLINDAMYCIN [Suspect]
     Active Substance: CLINDAMYCIN\CLINDAMYCIN PHOSPHATE
     Indication: TOOTHACHE
     Route: 048
     Dates: start: 20150704, end: 20150707
  13. NITROGLYCERIN. [Concomitant]
     Active Substance: NITROGLYCERIN
  14. OMEPRAZOLE. [Concomitant]
     Active Substance: OMEPRAZOLE
  15. OXYCODONE [Concomitant]
     Active Substance: OXYCODONE
  16. ISOSORBIDE MONONITRATE EXTENDED RELEASE [Concomitant]
     Active Substance: ISOSORBIDE MONONITRATE
  17. TEARS NATURALE EYE DROPS [Concomitant]
  18. SENNA PLUS [Concomitant]
     Active Substance: DOCUSATE SODIUM\SENNOSIDES\SENNOSIDES A AND B
  19. TAMSULOSIN [Concomitant]
     Active Substance: TAMSULOSIN
  20. ACETAMINOPHEN. [Concomitant]
     Active Substance: ACETAMINOPHEN
  21. ALLOPURINOL. [Concomitant]
     Active Substance: ALLOPURINOL
  22. BUMETANIDE. [Concomitant]
     Active Substance: BUMETANIDE
  23. DUONEBS [Concomitant]
  24. MULTIVITAMIN [Concomitant]
     Active Substance: VITAMINS
  25. METOPROLOL SUCCINATE. [Concomitant]
     Active Substance: METOPROLOL SUCCINATE
  26. VITAMIN D [Concomitant]
     Active Substance: CHOLECALCIFEROL

REACTIONS (4)
  - Acute myocardial infarction [None]
  - Anaphylactic shock [None]
  - Cardiac failure congestive [None]
  - Pyrexia [None]

NARRATIVE: CASE EVENT DATE: 20150706
